FAERS Safety Report 25813507 (Version 1)
Quarter: 2025Q3

REPORT INFORMATION
  Report Type: Spontaneous
  Country: EU (occurrence: EU)
  Receive Date: 20250917
  Receipt Date: 20250917
  Transmission Date: 20251020
  Serious: Yes (Hospitalization)
  Sender: TEVA
  Company Number: None

PATIENT
  Age: 69 Year
  Sex: Female

DRUGS (1)
  1. TENOFOVIR [Suspect]
     Active Substance: TENOFOVIR
     Indication: Hepatic cirrhosis
     Dosage: 245 MG, 1 TABLET/DAY; TENOFOVIR DISOPROXIL TEVA
     Route: 048
     Dates: start: 20250728, end: 20250804

REACTIONS (3)
  - Sopor [Recovered/Resolved]
  - Abdominal distension [Recovered/Resolved]
  - Disturbance in attention [Recovered/Resolved]

NARRATIVE: CASE EVENT DATE: 20250730
